FAERS Safety Report 21807266 (Version 1)
Quarter: 2023Q1

REPORT INFORMATION
  Report Type: Spontaneous
  Country: CN (occurrence: CN)
  Receive Date: 20230102
  Receipt Date: 20230102
  Transmission Date: 20230418
  Serious: Yes (Other)
  Sender: FDA-Public Use
  Company Number: None

PATIENT
  Age: 48 Year
  Sex: Female
  Weight: 67.5 kg

DRUGS (5)
  1. CYCLOPHOSPHAMIDE [Suspect]
     Active Substance: CYCLOPHOSPHAMIDE
     Indication: Breast cancer female
     Dosage: 900 MG, QD (DILUTED WITH 0.9% SODIUM CHLORIDE 100 ML)
     Route: 041
     Dates: start: 20221129, end: 20221129
  2. SODIUM CHLORIDE [Suspect]
     Active Substance: SODIUM CHLORIDE
     Indication: Medication dilution
     Dosage: 100 ML, QD, STRENGTH: 0.9%, DOSAGE FORM: INJECTION (USED TO DILUTE CYCLOPHOSPHAMIDE 900 MG)
     Route: 041
     Dates: start: 20221129, end: 20221129
  3. DEXTROSE MONOHYDRATE [Suspect]
     Active Substance: DEXTROSE MONOHYDRATE
     Indication: Medication dilution
     Dosage: 250 ML, QD, STRENGTH: 0.5%, DOSAGE FORM: INJECTION (USED TO DILUTE DOXORUBICIN HYDROCHLORIDE 60 MG)
     Route: 041
     Dates: start: 20221129, end: 20221129
  4. DOXORUBICIN HYDROCHLORIDE [Suspect]
     Active Substance: DOXORUBICIN HYDROCHLORIDE
     Indication: Breast cancer female
     Dosage: 60 MG, QD (DILUTED WITH 5% GLUCOSE 250 ML)
     Route: 041
     Dates: start: 20221129, end: 20221129
  5. XIN RUI BAI [Concomitant]
     Indication: Prophylaxis
     Dosage: 6 MG, ONCE (24-48 HOURS AFTER CHEMOTHERAPY)
     Route: 058
     Dates: start: 202212

REACTIONS (1)
  - Neutrophil count decreased [Recovering/Resolving]

NARRATIVE: CASE EVENT DATE: 20221213
